FAERS Safety Report 13524911 (Version 1)
Quarter: 2017Q2

REPORT INFORMATION
  Report Type: Spontaneous
  Country: US (occurrence: US)
  Receive Date: 20170508
  Receipt Date: 20170508
  Transmission Date: 20170830
  Serious: No
  Sender: FDA-Public Use
  Company Number: US-ROCHE-1126995

PATIENT
  Sex: Male
  Weight: 99 kg

DRUGS (6)
  1. AVASTIN [Suspect]
     Active Substance: BEVACIZUMAB
     Indication: COLON CANCER
     Route: 065
  2. AVASTIN [Suspect]
     Active Substance: BEVACIZUMAB
     Route: 065
     Dates: start: 20060220
  3. AVASTIN [Suspect]
     Active Substance: BEVACIZUMAB
     Route: 065
     Dates: start: 20060306
  4. AVASTIN [Suspect]
     Active Substance: BEVACIZUMAB
     Route: 065
     Dates: start: 20050422
  5. AVASTIN [Suspect]
     Active Substance: BEVACIZUMAB
     Route: 065
     Dates: start: 20060206
  6. 5-FU [Concomitant]
     Active Substance: FLUOROURACIL
     Route: 065
     Dates: start: 20050422

REACTIONS (2)
  - Carcinoembryonic antigen increased [Unknown]
  - Metastases to liver [Unknown]
